FAERS Safety Report 5049415-1 (Version None)
Quarter: 2006Q2

REPORT INFORMATION
  Report Type: 
  Country: None (occurrence: None)
  Receive Date: 20060613
  Receipt Date: 20060407
  Transmission Date: 20061013
  Serious: No
  Sender: FDA-Public Use
  Company Number: 2006-00821

PATIENT
  Age: 33 Year
  Sex: Male
  Weight: 77.1 kg

DRUGS (2)
  1. VELCADE [Suspect]
     Indication: MULTIPLE MYELOMA
     Dates: start: 20060301
  2. DEXAMETHASONE [Concomitant]

REACTIONS (1)
  - SEXUAL DYSFUNCTION [None]
